FAERS Safety Report 4895411-4 (Version None)
Quarter: 2006Q1

REPORT INFORMATION
  Report Type: 
  Country: None (occurrence: None)
  Receive Date: 20060130
  Receipt Date: 20050802
  Transmission Date: 20060701
  Serious: No
  Sender: FDA-Public Use
  Company Number: US-GLAXOSMITHKLINE-A0568616A

PATIENT
  Age: 14 Year
  Sex: Female

DRUGS (2)
  1. COMBIVIR [Suspect]
     Indication: DRUG USE FOR UNKNOWN INDICATION
     Dosage: 150MG TWICE PER DAY
     Route: 048
     Dates: start: 20050731
  2. NO CONCURRENT MEDICATION [Concomitant]

REACTIONS (3)
  - CRYING [None]
  - DEPRESSION [None]
  - SOMNOLENCE [None]
